FAERS Safety Report 6550811-1 (Version None)
Quarter: 2010Q1

REPORT INFORMATION
  Report Type: 
  Country: None (occurrence: None)
  Receive Date: 20100125
  Receipt Date: 20091022
  Transmission Date: 20100710
  Serious: Yes (Other)
  Sender: FDA-Public Use
  Company Number: US-TYCO HEALTHCARE/MALLINCKRODT-T200901924

PATIENT
  Sex: Female
  Weight: 86.168 kg

DRUGS (1)
  1. OPTIRAY 350 [Suspect]
     Indication: COMPUTERISED TOMOGRAM
     Dosage: 115 ML, SINGLE
     Route: 042
     Dates: start: 20091015, end: 20091015

REACTIONS (3)
  - DYSPNOEA [None]
  - NASAL CONGESTION [None]
  - THROAT TIGHTNESS [None]
